FAERS Safety Report 23203454 (Version 1)
Quarter: 2023Q4

REPORT INFORMATION
  Report Type: Other
  Country: US (occurrence: None)
  Receive Date: 20231120
  Receipt Date: 20231120
  Transmission Date: 20240109
  Serious: No
  Sender: FDA-Public Use
  Company Number: US-ROCHE-3446171

PATIENT
  Age: 67 Year
  Sex: Female
  Weight: 59.474 kg

DRUGS (9)
  1. OCREVUS [Suspect]
     Active Substance: OCRELIZUMAB
     Indication: Relapsing-remitting multiple sclerosis
     Dosage: NEUROLOGIST PUT ON HOLD FOR UNCONTROLLED MAC. NEXT DATE OF SERVIVCE: 10/2/23
     Route: 042
     Dates: start: 202110, end: 20230715
  2. OCREVUS [Suspect]
     Active Substance: OCRELIZUMAB
     Dosage: ONLY HAD ONE DOSE OF 300 MG OCREVUS.
     Route: 042
     Dates: start: 202104, end: 202104
  3. AZATHIOPRINE [Concomitant]
     Active Substance: AZATHIOPRINE
  4. ROFECOXIB [Concomitant]
     Active Substance: ROFECOXIB
  5. CELECOXIB [Concomitant]
     Active Substance: CELECOXIB
  6. METAXALONE [Concomitant]
     Active Substance: METAXALONE
  7. ETHAMBUTOL [Concomitant]
     Active Substance: ETHAMBUTOL HYDROCHLORIDE
  8. AZITHROMYCIN [Concomitant]
     Active Substance: AZITHROMYCIN
  9. RIFAMPIN [Concomitant]
     Active Substance: RIFAMPIN

REACTIONS (15)
  - Obstructive sleep apnoea syndrome [Not Recovered/Not Resolved]
  - Headache [Recovered/Resolved]
  - Off label use [Unknown]
  - Gastrointestinal disorder [Recovered/Resolved]
  - Drug hypersensitivity [Recovered/Resolved]
  - Feeling abnormal [Unknown]
  - Dyspnoea [Not Recovered/Not Resolved]
  - Fatigue [Not Recovered/Not Resolved]
  - Blood potassium decreased [Recovered/Resolved]
  - Hepatic enzyme increased [Recovered/Resolved]
  - Mycobacterium avium complex infection [Unknown]
  - Cognitive disorder [Unknown]
  - Nausea [Unknown]
  - Myalgia [Unknown]
  - Gait disturbance [Unknown]

NARRATIVE: CASE EVENT DATE: 20210401
